FAERS Safety Report 6122402-8 (Version None)
Quarter: 2009Q1

REPORT INFORMATION
  Report Type: 
  Country: None (occurrence: None)
  Receive Date: 20090318
  Receipt Date: 20090127
  Transmission Date: 20090719
  Serious: No
  Sender: FDA-Public Use
  Company Number: US-ASTRAZENECA-2009UW02323

PATIENT
  Age: 25979 Day
  Sex: Female
  Weight: 63.5 kg

DRUGS (13)
  1. SYMBICORT [Suspect]
     Indication: ASTHMA
     Dosage: 160/4.5 UG, 2 PUFFS, BID
     Route: 055
     Dates: start: 20080401
  2. SPIRIVA [Concomitant]
  3. ACTONEL [Concomitant]
  4. TENORMIN [Concomitant]
  5. CARDIA [Concomitant]
  6. PREVACID [Concomitant]
  7. SYMAX [Concomitant]
  8. SYNTHROID [Concomitant]
  9. DEMIDEX [Concomitant]
  10. LIPITOR [Concomitant]
  11. PLAVIX [Concomitant]
  12. CALCIUM [Concomitant]
  13. ASPIRIN [Concomitant]

REACTIONS (1)
  - LARYNGITIS [None]
